FAERS Safety Report 7583192-5 (Version None)
Quarter: 2011Q2

REPORT INFORMATION
  Report Type: 
  Country: None (occurrence: None)
  Receive Date: 20110630
  Receipt Date: 20110613
  Transmission Date: 20111010
  Serious: No
  Sender: FDA-Public Use
  Company Number: US-B.I. PHARMACEUTICALS,INC./RIDGEFIELD-2011-BP-12214BP

PATIENT
  Age: 78 Year
  Sex: Male
  Weight: 86.84 kg

DRUGS (8)
  1. SPIRIVA [Suspect]
     Indication: DYSPNOEA
     Dosage: 18 MCG
     Route: 055
     Dates: start: 20110421, end: 20110502
  2. SPIRIVA [Suspect]
     Indication: CHRONIC OBSTRUCTIVE PULMONARY DISEASE
  3. AMLODIPINE [Concomitant]
  4. PLAVIX [Concomitant]
     Route: 048
  5. PRILOSEC [Concomitant]
  6. ASPIRIN [Concomitant]
     Dosage: 81 MG
     Route: 048
  7. BENAZEPRIL HYDROCHLORIDE [Concomitant]
  8. LIPITOR [Concomitant]

REACTIONS (4)
  - COUGH [None]
  - LACRIMATION INCREASED [None]
  - RHINORRHOEA [None]
  - EPISTAXIS [None]
